FAERS Safety Report 8062669-2 (Version None)
Quarter: 2012Q1

REPORT INFORMATION
  Report Type: 
  Country: None (occurrence: None)
  Receive Date: 20120123
  Receipt Date: 20120117
  Transmission Date: 20120608
  Serious: Yes (Disabling)
  Sender: FDA-Public Use
  Company Number: US-PFIZER INC-2012013621

PATIENT
  Sex: Female
  Weight: 43.5 kg

DRUGS (5)
  1. PREMARIN [Suspect]
     Indication: BONE MARROW DISORDER
  2. VITAMIN B-12 [Concomitant]
     Dosage: UNK
  3. PREMARIN [Suspect]
     Indication: PREMATURE MENOPAUSE
     Dosage: 0.625 MG, 1X/DAY
     Route: 048
     Dates: start: 19890101
  4. PREMARIN [Suspect]
     Indication: OSTEOPOROSIS
  5. ACETAMINOPHEN [Concomitant]
     Dosage: UNK

REACTIONS (1)
  - ANKYLOSING SPONDYLITIS [None]
